FAERS Safety Report 17162250 (Version 1)
Quarter: 2019Q4

REPORT INFORMATION
  Report Type: Spontaneous
  Country: CN (occurrence: CN)
  Receive Date: 20191217
  Receipt Date: 20191217
  Transmission Date: 20200122
  Serious: Yes (Other)
  Sender: FDA-Public Use
  Company Number: CN-SUN PHARMACEUTICAL INDUSTRIES LTD-2019R1-210779

PATIENT
  Age: 47 Year
  Sex: Male

DRUGS (6)
  1. PACLITAXEL. [Suspect]
     Active Substance: PACLITAXEL
     Dosage: 150 MILLIGRAM/SQ. METER, EVERY 3 WEEKS, NINE CYCLES
     Route: 065
  2. PACLITAXEL. [Suspect]
     Active Substance: PACLITAXEL
     Indication: LUNG SQUAMOUS CELL CARCINOMA METASTATIC
     Dosage: 150 MILLIGRAM/SQ. METER, EVERY 3 WEEKS, SIX CYCLES
     Route: 065
  3. AFATINIB [Suspect]
     Active Substance: AFATINIB
     Indication: BRAIN NEOPLASM
     Dosage: 40 MILLIGRAM, DAILY
  4. CISPLATIN. [Suspect]
     Active Substance: CISPLATIN
     Indication: LUNG SQUAMOUS CELL CARCINOMA METASTATIC
     Dosage: 75 MILLIGRAM/SQ. METER, EVERY 3 WEEKS, SIX CYCLES
     Route: 065
  5. ERLOTINIB [Suspect]
     Active Substance: ERLOTINIB
     Indication: LUNG SQUAMOUS CELL CARCINOMA METASTATIC
     Dosage: 150 MILLIGRAM, DAILY
     Route: 065
  6. GEMCITABINE. [Suspect]
     Active Substance: GEMCITABINE
     Indication: BRAIN NEOPLASM
     Dosage: 1000 MILLIGRAM/SQ. METER, EVERY 3 WEEKS FOR EIGHT CYCLES
     Route: 065

REACTIONS (2)
  - Drug ineffective [Recovering/Resolving]
  - Drug resistance [Unknown]
